FAERS Safety Report 7731973-7 (Version None)
Quarter: 2011Q3

REPORT INFORMATION
  Report Type: 
  Country: None (occurrence: None)
  Receive Date: 20110906
  Receipt Date: 20110719
  Transmission Date: 20111222
  Serious: No
  Sender: FDA-Public Use
  Company Number: US-AMGEN-USASP2011036637

PATIENT
  Sex: Female

DRUGS (2)
  1. SYMBICORT [Concomitant]
     Dosage: UNK
     Dates: start: 20110101
  2. PROLIA [Suspect]
     Indication: PRODUCT USED FOR UNKNOWN INDICATION
     Dosage: 60 MG, Q6MO
     Dates: start: 20110101

REACTIONS (2)
  - CATARACT [None]
  - EYE DISORDER [None]
